FAERS Safety Report 19106269 (Version 2)
Quarter: 2021Q2

REPORT INFORMATION
  Report Type: Report from Study
  Country: BR (occurrence: BR)
  Receive Date: 20210408
  Receipt Date: 20210615
  Transmission Date: 20210717
  Serious: No
  Sender: FDA-Public Use
  Company Number: BR-KYOWAKIRIN-2021BKK005176

PATIENT

DRUGS (4)
  1. BUROSUMAB [Suspect]
     Active Substance: BUROSUMAB
     Indication: ALBRIGHT^S DISEASE
     Dosage: 0.3 MG/KG (0.3 MG/KG, 1 IN 15 D)
     Route: 058
     Dates: start: 20210223, end: 20210223
  2. BUROSUMAB [Suspect]
     Active Substance: BUROSUMAB
     Dosage: 0.3 MG/KG (0.3 MG/KG, 1 IN 15 D)
     Route: 058
     Dates: start: 202012
  3. THIAMAZOLE [Concomitant]
     Active Substance: METHIMAZOLE
     Indication: PRODUCT USED FOR UNKNOWN INDICATION
     Dosage: 30 MG, IN THE MORNING
     Route: 048
  4. PROPRANOLOL [Concomitant]
     Active Substance: PROPRANOLOL HYDROCHLORIDE
     Indication: PRODUCT USED FOR UNKNOWN INDICATION
     Dosage: 10 MG, IN THE MORNING AND NIGHT
     Route: 048

REACTIONS (2)
  - Limb deformity [Not Recovered/Not Resolved]
  - Bone metabolism disorder [Not Recovered/Not Resolved]
